FAERS Safety Report 9766468 (Version 2)
Quarter: 2014Q4

REPORT INFORMATION
  Report Type: Spontaneous
  Country: US (occurrence: US)
  Receive Date: 20131217
  Receipt Date: 20141217
  Transmission Date: 20150529
  Serious: No
  Sender: FDA-Public Use
  Company Number: US-GLAXOSMITHKLINE-A1028581A

PATIENT
  Sex: Female

DRUGS (1)
  1. VOTRIENT [Suspect]
     Active Substance: PAZOPANIB HYDROCHLORIDE
     Indication: SARCOMA
     Dosage: 200 MG, UNKNOWN DOSING
     Route: 065
     Dates: start: 20130404, end: 20130701

REACTIONS (14)
  - Abdominal pain upper [Unknown]
  - Stress [Unknown]
  - Product taste abnormal [Unknown]
  - Weight decreased [Unknown]
  - Skin odour abnormal [Unknown]
  - Sunburn [Unknown]
  - Alopecia [Not Recovered/Not Resolved]
  - Hair colour changes [Not Recovered/Not Resolved]
  - Pain in extremity [Unknown]
  - Ill-defined disorder [Unknown]
  - Drug administration error [Recovered/Resolved]
  - Photosensitivity reaction [Unknown]
  - Chest pain [Unknown]
  - Adverse event [Unknown]
